FAERS Safety Report 10142264 (Version 1)
Quarter: 2014Q2

REPORT INFORMATION
  Report Type: Report from Study
  Country: MX (occurrence: MX)
  Receive Date: 20140429
  Receipt Date: 20140429
  Transmission Date: 20141212
  Serious: Yes (Death)
  Sender: FDA-Public Use
  Company Number: PHHY2014MX051923

PATIENT
  Age: 87 Year
  Sex: Female

DRUGS (1)
  1. EXFORGE HCT [Suspect]
     Indication: HYPERTENSION
     Dosage: 1 DF (VALS 320 MG / AMLO 10 MG / HYDR 25 MG), DAILY
     Route: 048
     Dates: end: 201402

REACTIONS (1)
  - Cerebral artery embolism [Fatal]
